FAERS Safety Report 5806774-7 (Version None)
Quarter: 2008Q3

REPORT INFORMATION
  Report Type: 
  Country: None (occurrence: None)
  Receive Date: 20080709
  Receipt Date: 20080709
  Transmission Date: 20090109
  Serious: Yes (Disabling)
  Sender: FDA-Public Use
  Company Number: None

PATIENT
  Age: 29 Year
  Sex: Female
  Weight: 58.9676 kg

DRUGS (1)
  1. MIRENA [Suspect]
     Indication: CONTRACEPTION
     Dosage: ONE MIRENA IMPLANT ONCE VAG
     Route: 067
     Dates: start: 20070403, end: 20070707

REACTIONS (10)
  - ARTHRALGIA [None]
  - DEPRESSION [None]
  - DISEASE RECURRENCE [None]
  - HEADACHE [None]
  - MIGRAINE [None]
  - MYALGIA [None]
  - PAIN [None]
  - URINARY TRACT INFECTION [None]
  - VAGINITIS BACTERIAL [None]
  - WEIGHT INCREASED [None]
